FAERS Safety Report 23100083 (Version 1)
Quarter: 2023Q4

REPORT INFORMATION
  Report Type: Spontaneous
  Country: US (occurrence: None)
  Receive Date: 20231023
  Receipt Date: 20231023
  Transmission Date: 20240110
  Serious: Yes (unspecified)
  Sender: FDA-Public Use
  Company Number: None

PATIENT
  Age: 24 Year
  Sex: Female
  Weight: 72 kg

DRUGS (8)
  1. levoceterizine [Concomitant]
     Indication: Heavy menstrual bleeding
  2. levoceterizine [Concomitant]
  3. ButalbitaAAcetaminiphen-Caffeine [Concomitant]
  4. CAFFEINE [Concomitant]
     Active Substance: CAFFEINE
  5. MAGNESIUM [Concomitant]
     Active Substance: MAGNESIUM
  6. IRON [Concomitant]
     Active Substance: IRON
  7. B2 [Concomitant]
  8. LYSTEDA [Suspect]
     Active Substance: TRANEXAMIC ACID
     Dosage: 1  F5 TIMES  A WEEK

REACTIONS (6)
  - Visual impairment [None]
  - Vitreous floaters [None]
  - Migraine [None]
  - Aura [None]
  - Papilloedema [None]
  - CSF pressure increased [None]

NARRATIVE: CASE EVENT DATE: 20230906
